FAERS Safety Report 7056659-6 (Version None)
Quarter: 2010Q4

REPORT INFORMATION
  Report Type: 
  Country: None (occurrence: None)
  Receive Date: 20101021
  Receipt Date: 20101007
  Transmission Date: 20110411
  Serious: Yes (Hospitalization)
  Sender: FDA-Public Use
  Company Number: US-ELI_LILLY_AND_COMPANY-US201008003801

PATIENT
  Sex: Female

DRUGS (19)
  1. FORTEO [Suspect]
     Indication: OSTEOPOROSIS
     Dosage: 20 UG, DAILY (1/D)
     Route: 065
     Dates: start: 20090617, end: 20100727
  2. XIFAXAN [Concomitant]
  3. LASIX [Concomitant]
  4. ALDACTONE [Concomitant]
  5. CELEXA [Concomitant]
  6. VITAMIN D [Concomitant]
  7. CALCIUM [Concomitant]
  8. PREDNISONE [Concomitant]
  9. VALCYTE [Concomitant]
  10. MULTI-VITAMIN [Concomitant]
  11. XANAX [Concomitant]
  12. CYCLOSPORINE [Concomitant]
  13. METOPROLOL SUCCINATE [Concomitant]
  14. ASPIRIN [Concomitant]
  15. PRILOSEC [Concomitant]
  16. NEURONTIN [Concomitant]
  17. COLACE [Concomitant]
  18. BACTRIM [Concomitant]
  19. SEROQUEL [Concomitant]

REACTIONS (4)
  - DELIRIUM [None]
  - ENCEPHALOPATHY [None]
  - NAUSEA [None]
  - PNEUMONIA [None]
